FAERS Safety Report 5675475-0 (Version None)
Quarter: 2008Q2

REPORT INFORMATION
  Report Type: 
  Country: None (occurrence: None)
  Receive Date: 20080311
  Receipt Date: 20080118
  Transmission Date: 20081010
  Serious: Yes (Other)
  Sender: FDA-Public Use
  Company Number: PHEH2007US14398

PATIENT
  Age: 50 Year
  Sex: Female

DRUGS (4)
  1. TRILEPTAL [Suspect]
     Indication: PAIN
     Dosage: 4X 150 MG, QHS, ORAL; 600 MG, QHS; 4X150 MG QHS, ORAL
     Route: 048
     Dates: start: 20060221
  2. FIORINAL [Concomitant]
  3. DIAZEPAM [Concomitant]
  4. MARINOL [Concomitant]

REACTIONS (2)
  - LIP SWELLING [None]
  - SWOLLEN TONGUE [None]
